FAERS Safety Report 5671568-2 (Version None)
Quarter: 2008Q1

REPORT INFORMATION
  Report Type: 
  Country: None (occurrence: None)
  Receive Date: 20080318
  Receipt Date: 20080311
  Transmission Date: 20080703
  Serious: Yes (Life-Threatening, Hospitalization, Disabling, Other)
  Sender: FDA-Public Use
  Company Number: US-MERCK-0802USA01084

PATIENT
  Age: 53 Year
  Sex: Male
  Weight: 74 kg

DRUGS (10)
  1. ISENTRESS [Suspect]
     Indication: HIV INFECTION
     Route: 048
     Dates: start: 20071113, end: 20080123
  2. LEXIVA [Concomitant]
     Route: 065
  3. VIREAD [Concomitant]
     Route: 048
     Dates: start: 20021107, end: 20080108
  4. PRAVACHOL [Concomitant]
     Indication: HYPERLIPIDAEMIA
     Route: 065
  5. GEMFIBROZIL [Concomitant]
     Indication: HYPERLIPIDAEMIA
     Route: 065
  6. LISINOPRIL [Concomitant]
     Indication: HYPERTENSION
     Route: 065
  7. HYDROCHLOROTHIAZIDE [Concomitant]
     Indication: HYPERTENSION
     Route: 065
  8. [THERAPY UNSPECIFIED] [Concomitant]
     Indication: HYPOGONADISM
     Route: 065
  9. REYATAZ [Concomitant]
     Route: 048
     Dates: start: 20071113, end: 20080108
  10. NORVIR [Concomitant]
     Route: 048
     Dates: start: 20071113, end: 20080108

REACTIONS (3)
  - ACUTE MYELOID LEUKAEMIA [None]
  - PANCYTOPENIA [None]
  - RASH [None]
